FAERS Safety Report 12473891 (Version 3)
Quarter: 2016Q4

REPORT INFORMATION
  Report Type: Report from Study
  Country: US (occurrence: US)
  Receive Date: 20160616
  Receipt Date: 20161012
  Transmission Date: 20170207
  Serious: Yes (Death, Hospitalization)
  Sender: FDA-Public Use
  Company Number: US-ALEXION PHARMACEUTICALS INC.-A201604363

PATIENT
  Age: 3 Year
  Sex: Male
  Weight: 16 kg

DRUGS (19)
  1. ECULIZUMAB [Suspect]
     Active Substance: ECULIZUMAB
     Indication: HAEMOLYTIC URAEMIC SYNDROME
     Dosage: 300 MG, Q2W
     Route: 042
     Dates: start: 20091230
  2. KEPPRA [Concomitant]
     Active Substance: LEVETIRACETAM
     Dosage: 200 MG, QHS
     Route: 048
  3. PENICILLIN V POTASSIUM. [Concomitant]
     Active Substance: PENICILLIN V POTASSIUM
     Indication: ANTIBIOTIC THERAPY
     Dosage: 250 MG, BID
     Route: 048
  4. CLONAZEPAM. [Concomitant]
     Active Substance: CLONAZEPAM
     Indication: SEIZURE
     Dosage: 1.25 MG, QHS
     Route: 048
  5. SIMETHICONE (DIMETHICONE) [Concomitant]
     Active Substance: DIMETHICONE
     Indication: PRODUCT USED FOR UNKNOWN INDICATION
     Dosage: 40 MG, QD PRN
     Route: 065
  6. POTASSIUM CHLORIDE. [Concomitant]
     Active Substance: POTASSIUM CHLORIDE
     Indication: RENAL IMPAIRMENT
     Dosage: 5.32 MEQ, BID
     Route: 065
  7. CLONAZEPAM. [Concomitant]
     Active Substance: CLONAZEPAM
     Dosage: UNK
     Route: 048
     Dates: start: 20100413, end: 20100417
  8. POTASSIUM CHLORIDE. [Concomitant]
     Active Substance: POTASSIUM CHLORIDE
     Dosage: UNK
     Route: 049
     Dates: start: 20100413, end: 20100417
  9. ERGOCALCIFEROL. [Concomitant]
     Active Substance: ERGOCALCIFEROL
     Indication: PRODUCT USED FOR UNKNOWN INDICATION
     Dosage: 2000 IU, QD
     Route: 065
  10. ECULIZUMAB [Suspect]
     Active Substance: ECULIZUMAB
     Dosage: 300 MG, Q10-14 DAYS
     Route: 042
     Dates: start: 20100413, end: 20100417
  11. CALCIUM CARBONATE. [Concomitant]
     Active Substance: CALCIUM CARBONATE
     Indication: RENAL FAILURE
     Dosage: 250 MG, QD
     Route: 049
     Dates: start: 20100413, end: 20100417
  12. CALCITRIOL. [Concomitant]
     Active Substance: CALCITRIOL
     Indication: RENAL IMPAIRMENT
     Dosage: 0.25 ?G, Q48H
     Route: 048
  13. KEPPRA [Concomitant]
     Active Substance: LEVETIRACETAM
     Dosage: UNK
     Route: 049
     Dates: start: 20100413, end: 20100417
  14. ENALAPRIL [Concomitant]
     Active Substance: ENALAPRIL
     Indication: PROPHYLAXIS
     Dosage: 0.5 MG, Q12HRS BID
     Route: 050
     Dates: start: 20100413, end: 20100417
  15. POTASSIUM CHLORIDE. [Concomitant]
     Active Substance: POTASSIUM CHLORIDE
     Dosage: UNK PO OR IV
     Route: 065
     Dates: start: 20100415, end: 20100415
  16. CALCITRIOL. [Concomitant]
     Active Substance: CALCITRIOL
     Dosage: UNK
     Route: 049
     Dates: start: 20100413, end: 20100417
  17. ARANESP [Concomitant]
     Active Substance: DARBEPOETIN ALFA
     Indication: RENAL IMPAIRMENT
     Dosage: 25 ?G, QW
     Route: 058
     Dates: start: 20100413, end: 20100417
  18. PENICILLIN V POTASSIUM. [Concomitant]
     Active Substance: PENICILLIN V POTASSIUM
     Dosage: UNK
     Route: 049
     Dates: start: 20100413, end: 20100417
  19. KEPPRA [Concomitant]
     Active Substance: LEVETIRACETAM
     Indication: SEIZURE
     Dosage: 100 MG, BID
     Route: 048

REACTIONS (2)
  - Pneumonia pneumococcal [Fatal]
  - Abdominal pain [Fatal]

NARRATIVE: CASE EVENT DATE: 20100413
